FAERS Safety Report 20365645 (Version 1)
Quarter: 2022Q1

REPORT INFORMATION
  Report Type: Spontaneous
  Country: US (occurrence: US)
  Receive Date: 20220123
  Receipt Date: 20220123
  Transmission Date: 20220423
  Serious: No
  Sender: FDA-Public Use
  Company Number: US-AMGEN-USASP2022006261

PATIENT
  Age: 60 Year
  Sex: Female

DRUGS (2)
  1. MVASI [Suspect]
     Active Substance: BEVACIZUMAB-AWWB
     Indication: Colon cancer
     Dosage: 390 MILLIGRAM, Q6WK
     Route: 065
  2. CAPECITABINE [Concomitant]
     Active Substance: CAPECITABINE
     Route: 048

REACTIONS (2)
  - Exposure to SARS-CoV-2 [Unknown]
  - Off label use [Unknown]

NARRATIVE: CASE EVENT DATE: 20220111
